FAERS Safety Report 8842143 (Version 1)
Quarter: 2012Q4

REPORT INFORMATION
  Report Type: Spontaneous
  Country: US (occurrence: None)
  Receive Date: 20121015
  Receipt Date: 20121015
  Transmission Date: 20130627
  Serious: No
  Sender: FDA-Public Use
  Company Number: None

PATIENT
  Age: 57 Year
  Sex: Male
  Weight: 63.2 kg

DRUGS (2)
  1. CARBOPLATIN [Suspect]
     Indication: NEOPLASM
     Route: 042
     Dates: start: 20120913, end: 20120913
  2. GEMCITABINE [Suspect]
     Indication: NEOPLASM
     Route: 042
     Dates: start: 20120913, end: 20120913

REACTIONS (1)
  - Febrile neutropenia [None]
